FAERS Safety Report 7621349-5 (Version None)
Quarter: 2011Q3

REPORT INFORMATION
  Report Type: 
  Country: None (occurrence: None)
  Receive Date: 20110719
  Receipt Date: 20110706
  Transmission Date: 20111222
  Serious: Yes (Other)
  Sender: FDA-Public Use
  Company Number: US-BAYER-200934410NA

PATIENT
  Age: 72 Year
  Sex: Male
  Weight: 70.295 kg

DRUGS (21)
  1. TRASYLOL [Suspect]
     Indication: ANEURYSM REPAIR
     Dosage: LOADING DOSE 200ML
     Route: 042
     Dates: start: 20050906, end: 20050906
  2. HEPARIN [Concomitant]
     Dosage: 28,000 UNITS
     Route: 042
     Dates: start: 20050906, end: 20050906
  3. EPINEPHRINE [Concomitant]
     Dosage: 6MCG/MIN
     Route: 042
     Dates: start: 20050906
  4. RED BLOOD CELLS [Concomitant]
     Dosage: UNK
     Dates: start: 20050906
  5. OMEPRAZOLE [Concomitant]
     Dosage: 20 MG, QD
     Route: 048
     Dates: start: 20050609
  6. LASIX [Concomitant]
     Dosage: 20MG
     Route: 042
     Dates: start: 20050906, end: 20060906
  7. METOPROLOL TARTRATE [Concomitant]
     Indication: CARDIAC FAILURE
     Dosage: 50MG 2 TABLES AND ONE-HALF TABLETS DAILY
     Route: 048
     Dates: start: 20050609
  8. ACETYLSALICYLIC ACID SRT [Concomitant]
     Dosage: 81 MG, QD
     Route: 048
     Dates: start: 20050609
  9. MILRINONE [Concomitant]
     Dosage: 350 MG BOLUS
     Route: 042
     Dates: start: 20050906
  10. LISINOPRIL [Concomitant]
     Dosage: 5 MG, QD
     Route: 048
     Dates: start: 20050609
  11. CARVEDILOL [Concomitant]
     Dosage: 6.25MG
     Route: 048
     Dates: start: 20050708
  12. WARFARIN SODIUM [Concomitant]
     Dosage: 5 MG, QD
     Route: 048
     Dates: start: 20050608
  13. MORPHINE [Concomitant]
  14. PLATELETS [Concomitant]
     Dosage: UNK
     Dates: start: 20050906
  15. ALBUMIN (HUMAN) [Concomitant]
     Dosage: 12.5GM
     Route: 042
     Dates: start: 20050906, end: 20050906
  16. LASIX [Concomitant]
     Dosage: 20 MG, QD
     Route: 048
     Dates: start: 20050609
  17. ENOXAPARIN [Concomitant]
     Dosage: 60 MG, QD
     Route: 058
     Dates: end: 20050607
  18. PROTAMINE SULFATE [Concomitant]
     Dosage: 200MG
     Route: 042
     Dates: start: 20050906, end: 20050906
  19. SPIRONOLACTONE [Concomitant]
     Dosage: 25 MG, QD
     Route: 048
  20. IMDUR [Concomitant]
     Dosage: 30 MG, QD
     Route: 048
     Dates: start: 20050708
  21. NITROGLYCERIN [Concomitant]
     Dosage: 0.4 MG, PRN
     Route: 060
     Dates: start: 20050609

REACTIONS (10)
  - RENAL FAILURE [None]
  - RENAL IMPAIRMENT [None]
  - RENAL INJURY [None]
  - ANXIETY [None]
  - UNEVALUABLE EVENT [None]
  - INJURY [None]
  - STRESS [None]
  - EMOTIONAL DISTRESS [None]
  - FEAR [None]
  - PAIN [None]
